FAERS Safety Report 5834358-3 (Version None)
Quarter: 2008Q3

REPORT INFORMATION
  Report Type: 
  Country: None (occurrence: None)
  Receive Date: 20080805
  Receipt Date: 20080725
  Transmission Date: 20090109
  Serious: Yes (Life-Threatening)
  Sender: FDA-Public Use
  Company Number: US-EISAI MEDIAL RESEARCH-E7272-00003-SPO-US

PATIENT
  Sex: Female

DRUGS (19)
  1. ONTAK [Suspect]
     Indication: MYCOSIS FUNGOIDES
     Dosage: UNKNOWN
     Route: 042
     Dates: end: 20080620
  2. ASPIRIN / EXTRA STRENGTH [Concomitant]
     Route: 048
  3. ALPRAZOLAM [Concomitant]
  4. CENTRUM [Concomitant]
     Route: 048
  5. DICYCLOMINE [Concomitant]
     Indication: DIARRHOEA
  6. FISH OIL [Concomitant]
  7. FOLIC ACID [Concomitant]
  8. ISOSORBIDE DINITRATE [Concomitant]
  9. L-LYSINE [Concomitant]
  10. METOPROLOL [Concomitant]
  11. OMEPRAZOLE [Concomitant]
  12. RESTORIL [Concomitant]
     Route: 048
  13. TEMAZEPAM [Concomitant]
     Indication: ANXIETY
  14. VALTREX [Concomitant]
     Indication: ORAL HERPES
     Route: 048
  15. VITAMIN B-12 [Concomitant]
  16. VYTORIN [Concomitant]
     Indication: HYPERLIPIDAEMIA
     Dosage: 10/80 MG
     Route: 048
  17. ZOFRAN [Concomitant]
     Indication: NAUSEA
     Route: 048
  18. HYDROCORTISONE CREAM [Concomitant]
  19. NEOSPORIN [Concomitant]

REACTIONS (5)
  - ATRIAL FIBRILLATION [None]
  - CAPILLARY LEAK SYNDROME [None]
  - PNEUMONIA [None]
  - RESPIRATORY FAILURE [None]
  - TRANSAMINASES INCREASED [None]
